FAERS Safety Report 5803033-3 (Version None)
Quarter: 2008Q3

REPORT INFORMATION
  Report Type: 
  Country: None (occurrence: None)
  Receive Date: 20080708
  Receipt Date: 20080701
  Transmission Date: 20090109
  Serious: Yes (Other)
  Sender: FDA-Public Use
  Company Number: US-JNJFOC-20080700761

PATIENT
  Sex: Male
  Weight: 71.67 kg

DRUGS (2)
  1. LEVAQUIN [Suspect]
     Indication: PROSTATE INFECTION
     Route: 048
  2. IBUPROFEN [Concomitant]
     Indication: PROSTATIC PAIN
     Route: 065

REACTIONS (8)
  - EXTRASYSTOLES [None]
  - MUSCLE TIGHTNESS [None]
  - MUSCULOSKELETAL STIFFNESS [None]
  - PAIN IN EXTREMITY [None]
  - PANIC ATTACK [None]
  - PARAESTHESIA [None]
  - PHOTOPHOBIA [None]
  - SACCADIC EYE MOVEMENT [None]
